FAERS Safety Report 7420218-3 (Version None)
Quarter: 2011Q2

REPORT INFORMATION
  Report Type: 
  Country: None (occurrence: None)
  Receive Date: 20110418
  Receipt Date: 20110404
  Transmission Date: 20111010
  Serious: Yes (Other)
  Sender: FDA-Public Use
  Company Number: US-JNJFOC-20110202815

PATIENT
  Sex: Female

DRUGS (10)
  1. FLAGYL [Concomitant]
     Indication: PREMEDICATION
     Route: 065
  2. DAPSONE [Concomitant]
     Indication: PREMEDICATION
     Route: 065
  3. PREDNISONE [Concomitant]
     Indication: PREMEDICATION
     Route: 065
  4. AMBIEN [Concomitant]
     Indication: PREMEDICATION
     Route: 065
  5. VICODIN [Concomitant]
     Indication: PREMEDICATION
     Route: 065
  6. LISINOPRIL [Concomitant]
     Indication: PREMEDICATION
     Route: 065
  7. ALPRAZOLAM [Concomitant]
     Indication: PREMEDICATION
     Route: 065
  8. REMICADE [Suspect]
     Indication: CROHN'S DISEASE
     Route: 042
  9. CIPROL [Concomitant]
     Indication: PREMEDICATION
     Route: 065
  10. OMEPRAZOLE [Concomitant]
     Indication: PREMEDICATION
     Route: 065

REACTIONS (5)
  - CROHN'S DISEASE [None]
  - LEUKOCYTOCLASTIC VASCULITIS [None]
  - GRANULOMA [None]
  - LYMPHANGIECTASIA [None]
  - STAPHYLOCOCCAL SKIN INFECTION [None]
